FAERS Safety Report 10008504 (Version 1)
Quarter: 2014Q1

REPORT INFORMATION
  Report Type: Spontaneous
  Country: US (occurrence: US)
  Receive Date: 20140313
  Receipt Date: 20140313
  Transmission Date: 20141002
  Serious: Yes (Other)
  Sender: FDA-Public Use
  Company Number: US-LUNDBECK-DKLU1098162

PATIENT
  Age: 17 Year
  Sex: Female

DRUGS (1)
  1. SABRIL (TABLET) [Suspect]
     Indication: TEMPORAL LOBE EPILEPSY
     Route: 048
     Dates: start: 20131206

REACTIONS (3)
  - Suicidal ideation [Unknown]
  - Agitation [Unknown]
  - Weight increased [Unknown]
